FAERS Safety Report 8451158-9 (Version None)
Quarter: 2012Q2

REPORT INFORMATION
  Report Type: 
  Country: None (occurrence: None)
  Receive Date: 20120620
  Receipt Date: 20120224
  Transmission Date: 20120825
  Serious: No
  Sender: FDA-Public Use
  Company Number: US-VERTEX PHARMACEUTICALS INC.-AE-2011-002400

PATIENT
  Sex: Male
  Weight: 68.1 kg

DRUGS (10)
  1. INCIVEK [Suspect]
     Indication: HEPATITIS C
     Route: 048
     Dates: start: 20111003, end: 20111217
  2. RIBAVIRIN [Concomitant]
     Route: 048
     Dates: start: 20111006
  3. SYNTHROID [Concomitant]
     Indication: HYPOTHYROIDISM
  4. RIBAVIRIN [Concomitant]
     Indication: HEPATITIS C
     Route: 048
     Dates: start: 20111003
  5. CELEXA [Concomitant]
     Indication: DEPRESSION
     Route: 048
  6. FISH OIL [Concomitant]
  7. ASPIRIN [Concomitant]
     Route: 048
  8. PEGASYS [Concomitant]
     Indication: HEPATITIS C
     Route: 058
     Dates: start: 20111003
  9. MULTI-VITAMIN [Concomitant]
     Indication: MEDICAL DIET
  10. DIOVAN [Concomitant]
     Indication: HYPERTENSION

REACTIONS (4)
  - DISTURBANCE IN ATTENTION [None]
  - FATIGUE [None]
  - DRY SKIN [None]
  - RASH [None]
